FAERS Safety Report 9304267 (Version 2)
Quarter: 2013Q2

REPORT INFORMATION
  Report Type: Spontaneous
  Country: US (occurrence: US)
  Receive Date: 20130522
  Receipt Date: 20130603
  Transmission Date: 20140414
  Serious: No
  Sender: FDA-Public Use
  Company Number: US-009507513-1305USA011590

PATIENT
  Age: 66 Year
  Sex: Male

DRUGS (2)
  1. COSOPT [Suspect]
     Dosage: UNK
     Route: 047
     Dates: start: 2010, end: 201304
  2. DORZOLAMIDE HYDROCHLORIDE (+) TIMOLOL MALEATE [Suspect]
     Dosage: UNK
     Dates: start: 20130317, end: 2013

REACTIONS (1)
  - Hypersensitivity [Recovered/Resolved]
